FAERS Safety Report 17591619 (Version 1)
Quarter: 2020Q1

REPORT INFORMATION
  Report Type: Spontaneous
  Country: US (occurrence: US)
  Receive Date: 20200326
  Receipt Date: 20200326
  Transmission Date: 20200409
  Serious: Yes (Hospitalization)
  Sender: FDA-Public Use
  Company Number: None

PATIENT
  Age: 75 Year
  Sex: Female
  Weight: 77 kg

DRUGS (2)
  1. DAUNORUBICIN [Suspect]
     Active Substance: DAUNORUBICIN
     Dates: end: 20200307
  2. CYTARABINE. [Suspect]
     Active Substance: CYTARABINE
     Dates: end: 20200311

REACTIONS (7)
  - Acute myeloid leukaemia [None]
  - Heart rate increased [None]
  - Marrow hyperplasia [None]
  - Electrolyte imbalance [None]
  - Hypotension [None]
  - Febrile neutropenia [None]
  - Atrial fibrillation [None]

NARRATIVE: CASE EVENT DATE: 20200316
